FAERS Safety Report 19951606 (Version 2)
Quarter: 2021Q4

REPORT INFORMATION
  Report Type: Spontaneous
  Country: JP (occurrence: JP)
  Receive Date: 20211014
  Receipt Date: 20211022
  Transmission Date: 20220303
  Serious: Yes (Hospitalization, Other)
  Sender: FDA-Public Use
  Company Number: JP-UNITED THERAPEUTICS-UNT-2021-019779

PATIENT
  Age: 25 Year
  Sex: Male
  Weight: 40 kg

DRUGS (5)
  1. REMODULIN [Suspect]
     Active Substance: TREPROSTINIL
     Indication: Pulmonary arterial hypertension
     Dosage: UNK, CONTINUING
     Route: 041
     Dates: start: 20180322
  2. REMODULIN [Suspect]
     Active Substance: TREPROSTINIL
     Dosage: 0.043 ?G/KG, CONTINUING
     Route: 041
     Dates: end: 2021
  3. REMODULIN [Suspect]
     Active Substance: TREPROSTINIL
     Indication: Pulmonary arterial hypertension
     Dosage: UNK, CONTINUING
     Route: 058
     Dates: start: 2021
  4. ACETAMINOPHEN\TRAMADOL HYDROCHLORIDE [Suspect]
     Active Substance: ACETAMINOPHEN\TRAMADOL HYDROCHLORIDE
     Indication: Injection site pain
     Dosage: UNK
     Route: 048
     Dates: start: 2021, end: 2021
  5. ACETAMINOPHEN\TRAMADOL HYDROCHLORIDE [Suspect]
     Active Substance: ACETAMINOPHEN\TRAMADOL HYDROCHLORIDE
     Dosage: 1 TABLET, QID
     Route: 048
     Dates: start: 2021

REACTIONS (5)
  - Device related infection [Unknown]
  - Bacteraemia [Unknown]
  - Nausea [Unknown]
  - Injection site erythema [Unknown]
  - Injection site pain [Unknown]

NARRATIVE: CASE EVENT DATE: 20210101
